FAERS Safety Report 6047074-2 (Version None)
Quarter: 2009Q1

REPORT INFORMATION
  Report Type: 
  Country: None (occurrence: None)
  Receive Date: 20090122
  Receipt Date: 20090115
  Transmission Date: 20090719
  Serious: Yes (Disabling)
  Sender: FDA-Public Use
  Company Number: CA-ASTRAZENECA-2009UW01577

PATIENT
  Age: 75 Year
  Sex: Male
  Weight: 95 kg

DRUGS (13)
  1. CRESTOR [Suspect]
     Route: 048
  2. ACCUPRIL [Concomitant]
  3. APO BISOPROLOL [Concomitant]
  4. ASAPHEN [Concomitant]
  5. FUROSEMIDE [Concomitant]
  6. GLYBURIDE [Concomitant]
  7. IMDUR [Concomitant]
  8. METFORMIN [Concomitant]
  9. NASONEX [Concomitant]
  10. NITROGLYCERIN [Concomitant]
  11. RIVA K SR [Concomitant]
  12. TRUSOPT [Concomitant]
  13. XALATAN [Concomitant]

REACTIONS (10)
  - DYSKINESIA [None]
  - HYPERTONIA [None]
  - HYPOKINESIA [None]
  - MUSCULAR WEAKNESS [None]
  - MUSCULOSKELETAL PAIN [None]
  - MYALGIA [None]
  - PAIN [None]
  - PAIN IN EXTREMITY [None]
  - PARALYSIS [None]
  - TENDON DISORDER [None]
